FAERS Safety Report 5586850-7 (Version None)
Quarter: 2008Q1

REPORT INFORMATION
  Report Type: 
  Country: None (occurrence: None)
  Receive Date: 20080110
  Receipt Date: 20071227
  Transmission Date: 20080703
  Serious: Yes (Other)
  Sender: FDA-Public Use
  Company Number: CA-PURDUE-CAN_2007_0000419

PATIENT
  Sex: Male

DRUGS (5)
  1. OXYCONTIN [Suspect]
     Indication: PAIN
     Dosage: 80 MG, Q8H
     Route: 048
     Dates: start: 19990101
  2. OXYCONTIN [Suspect]
     Dosage: 480 MG, Q8H
     Route: 048
  3. FENTANYL [Suspect]
     Indication: PAIN
     Route: 062
  4. MORPHINE [Suspect]
     Indication: PAIN
  5. OXYCONTIN TABLETS 40 MG [Suspect]
     Indication: PAIN
     Dosage: SEE TEXT
     Route: 048

REACTIONS (8)
  - AGITATION [None]
  - DEPENDENCE [None]
  - DEPRESSION [None]
  - HYPOAESTHESIA [None]
  - MOOD SWINGS [None]
  - MUSCLE TWITCHING [None]
  - SUICIDAL IDEATION [None]
  - WITHDRAWAL SYNDROME [None]
